FAERS Safety Report 23728465 (Version 1)
Quarter: 2024Q2

REPORT INFORMATION
  Report Type: Spontaneous
  Country: JP (occurrence: None)
  Receive Date: 20240410
  Receipt Date: 20240410
  Transmission Date: 20240715
  Serious: Yes (Other)
  Sender: FDA-Public Use
  Company Number: 2024A082382

PATIENT
  Age: 66 Year
  Sex: Female

DRUGS (2)
  1. CALQUENCE [Suspect]
     Active Substance: ACALABRUTINIB
     Indication: Chronic lymphocytic leukaemia
     Dosage: DOSE UNKNOWN
     Route: 048
  2. OBINUTUZUMAB(GENETICAL RECOMBINATION) [Concomitant]
     Indication: Chronic lymphocytic leukaemia
     Dosage: DOSE UNKNOWN

REACTIONS (1)
  - Aplastic anaemia [Unknown]
